FAERS Safety Report 7526841-X (Version None)
Quarter: 2011Q2

REPORT INFORMATION
  Report Type: 
  Country: None (occurrence: None)
  Receive Date: 20110606
  Receipt Date: 20110523
  Transmission Date: 20111010
  Serious: Yes (Hospitalization, Other)
  Sender: FDA-Public Use
  Company Number: PHHY2011US44713

PATIENT
  Sex: Male

DRUGS (5)
  1. AFINITOR [Suspect]
     Dosage: 10 MG, QD
     Route: 048
  2. SUTENT [Suspect]
  3. CITALOPRAM [Concomitant]
     Dosage: 20 MG
  4. NEXIUM [Concomitant]
  5. DICYCLOMINE [Concomitant]
     Dosage: 20 MG, TID

REACTIONS (8)
  - LOSS OF CONSCIOUSNESS [None]
  - VISUAL IMPAIRMENT [None]
  - DIARRHOEA [None]
  - FEELING ABNORMAL [None]
  - FATIGUE [None]
  - THROMBOSIS [None]
  - ASTHENIA [None]
  - DECREASED APPETITE [None]
